FAERS Safety Report 5932840-1 (Version None)
Quarter: 2008Q4

REPORT INFORMATION
  Report Type: 
  Country: None (occurrence: None)
  Receive Date: 20081023
  Receipt Date: 20060707
  Transmission Date: 20090506
  Serious: Yes (Life-Threatening, Other)
  Sender: FDA-Public Use
  Company Number: 2006AL002233

PATIENT
  Age: 32 Year
  Sex: Male

DRUGS (3)
  1. CITALOPRAM HYDROBROMIDE [Suspect]
     Indication: DEPRESSION
     Dosage: 20 MG; QD
  2. ESCITALOPRAM [Concomitant]
  3. INSULIN [Concomitant]

REACTIONS (1)
  - HYPOGLYCAEMIA [None]
